FAERS Safety Report 16151759 (Version 2)
Quarter: 2022Q1

REPORT INFORMATION
  Report Type: Spontaneous
  Country: US (occurrence: US)
  Receive Date: 20190403
  Receipt Date: 20220324
  Transmission Date: 20220424
  Serious: No
  Sender: FDA-Public Use
  Company Number: US-UPSHER-SMITH LABORATORIES, LLC-2018USL00122

PATIENT
  Age: 71 Year
  Sex: Male
  Weight: 86.168 kg

DRUGS (7)
  1. PREVALITE [Suspect]
     Active Substance: CHOLESTYRAMINE
     Indication: Irritable bowel syndrome
     Dosage: 1 PACKET, 2X/DAY
     Route: 048
     Dates: start: 20180314, end: 20180314
  2. PREVALITE [Suspect]
     Active Substance: CHOLESTYRAMINE
     Dosage: 1 PACKET, 2X/DAY
     Route: 048
     Dates: end: 2021
  3. SPIRIVA [Concomitant]
     Active Substance: TIOTROPIUM BROMIDE MONOHYDRATE
  4. DILTIAZEM [Concomitant]
     Active Substance: DILTIAZEM
  5. LISINOPRIL [Concomitant]
     Active Substance: LISINOPRIL
  6. PRADAXA [Concomitant]
     Active Substance: DABIGATRAN ETEXILATE MESYLATE
  7. VITAMIN B12 [Concomitant]
     Active Substance: CYANOCOBALAMIN

REACTIONS (5)
  - Choking sensation [Recovered/Resolved]
  - Cough [Recovered/Resolved]
  - Throat irritation [Recovering/Resolving]
  - Foreign body in throat [Recovered/Resolved]
  - Product solubility abnormal [Recovered/Resolved]

NARRATIVE: CASE EVENT DATE: 20180314
